FAERS Safety Report 6411380-X (Version None)
Quarter: 2009Q4

REPORT INFORMATION
  Report Type: 
  Country: None (occurrence: None)
  Receive Date: 20091023
  Receipt Date: 20091022
  Transmission Date: 20100525
  Serious: No
  Sender: FDA-Public Use
  Company Number: US-B.I. PHARMACEUTICALS,INC./RIDGEFIELD-2008-BP-11069BP

PATIENT
  Sex: Female
  Weight: 49.9 kg

DRUGS (2)
  1. MIRAPEX [Suspect]
     Indication: PARKINSON'S DISEASE
     Dosage: 1.5 MG
     Dates: start: 20040416, end: 20071217
  2. MIRAPEX [Suspect]
     Indication: TREMOR

REACTIONS (5)
  - COMPULSIVE SHOPPING [None]
  - EMOTIONAL DISTRESS [None]
  - MANIA [None]
  - OBSESSIVE-COMPULSIVE DISORDER [None]
  - PATHOLOGICAL GAMBLING [None]
